FAERS Safety Report 7713114-5 (Version None)
Quarter: 2011Q3

REPORT INFORMATION
  Report Type: 
  Country: None (occurrence: None)
  Receive Date: 20110826
  Receipt Date: 20110811
  Transmission Date: 20111222
  Serious: Yes (Hospitalization)
  Sender: FDA-Public Use
  Company Number: PHHY2011IQ72909

PATIENT
  Age: 59 Year
  Sex: Female

DRUGS (4)
  1. HYDROCHLOROTHIAZIDE [Suspect]
     Indication: HYPERTENSION
  2. ENALAPRIL MALEATE [Suspect]
  3. SIMAVASTATIN [Suspect]
  4. METOPROLOL [Suspect]
     Indication: HYPERTENSION

REACTIONS (10)
  - DYSSTASIA [None]
  - ATAXIA [None]
  - BLOOD PRESSURE INCREASED [None]
  - CEREBELLAR HAEMATOMA [None]
  - VOMITING [None]
  - DYSARTHRIA [None]
  - GAIT DISTURBANCE [None]
  - BRAIN OEDEMA [None]
  - CEREBRAL HAEMORRHAGE [None]
  - SOMNOLENCE [None]
